FAERS Safety Report 8334448-X (Version None)
Quarter: 2012Q2

REPORT INFORMATION
  Report Type: 
  Country: None (occurrence: None)
  Receive Date: 20120503
  Receipt Date: 20120430
  Transmission Date: 20120825
  Serious: Yes (Hospitalization)
  Sender: FDA-Public Use
  Company Number: IT-BAYER-2012-042362

PATIENT
  Age: 32 Year
  Sex: Male

DRUGS (2)
  1. ASPIRIN [Suspect]
     Indication: INFLUENZA
     Dosage: 500 MG, ONCE
     Route: 048
     Dates: start: 20120412, end: 20120412
  2. ACETAMINOPHEN [Concomitant]
     Indication: INFLUENZA
     Dosage: DAILY DOSE 500 MG
     Route: 048
     Dates: start: 20120413, end: 20120414

REACTIONS (3)
  - ANAEMIA [None]
  - DUODENAL ULCER [None]
  - GASTRITIS [None]
